FAERS Safety Report 20171528 (Version 3)
Quarter: 2022Q1

REPORT INFORMATION
  Report Type: Spontaneous
  Country: US (occurrence: US)
  Receive Date: 20211210
  Receipt Date: 20220110
  Transmission Date: 20220423
  Serious: Yes (Hospitalization, Other)
  Sender: FDA-Public Use
  Company Number: US-ORGANON-O2112USA000894

PATIENT
  Age: 22 Year
  Sex: Female
  Weight: 52.154 kg

DRUGS (1)
  1. NEXPLANON [Suspect]
     Active Substance: ETONOGESTREL
     Indication: Contraception
     Dosage: 1 IMPLANT OF 68 MG, LEFT ARM FOR 3 YEARS
     Route: 059
     Dates: start: 201812

REACTIONS (11)
  - Complication of device removal [Not Recovered/Not Resolved]
  - General anaesthesia [Not Recovered/Not Resolved]
  - Device dislocation [Not Recovered/Not Resolved]
  - Device issue [Not Recovered/Not Resolved]
  - Pain in extremity [Not Recovered/Not Resolved]
  - Complication of device removal [Not Recovered/Not Resolved]
  - Complication of device removal [Not Recovered/Not Resolved]
  - Complication associated with device [Recovered/Resolved]
  - Device deployment issue [Not Recovered/Not Resolved]
  - Implant site bruising [Unknown]
  - Incorrect product administration duration [Unknown]

NARRATIVE: CASE EVENT DATE: 20181201
